FAERS Safety Report 9337888 (Version 2)
Quarter: 2013Q3

REPORT INFORMATION
  Report Type: Spontaneous
  Country: FR (occurrence: FR)
  Receive Date: 20130608
  Receipt Date: 20130703
  Transmission Date: 20140515
  Serious: Yes (Hospitalization)
  Sender: FDA-Public Use
  Company Number: FR-ROCHE-1233656

PATIENT
  Age: 57 Year
  Sex: Male

DRUGS (5)
  1. MABTHERA [Suspect]
     Indication: LYMPHOMA
     Route: 041
     Dates: start: 20121228, end: 20130117
  2. LEVACT (FRANCE) [Suspect]
     Indication: LYMPHOMA
     Route: 041
     Dates: start: 20121228, end: 20130117
  3. PULMICORT [Concomitant]
     Route: 065
     Dates: start: 200803
  4. BRICANYL [Concomitant]
     Route: 065
     Dates: start: 200803
  5. SERETIDE [Concomitant]
     Route: 065
     Dates: start: 200803

REACTIONS (2)
  - Pneumonia [Recovered/Resolved]
  - Eosinophilia [Recovered/Resolved]
